FAERS Safety Report 10579524 (Version 1)
Quarter: 2014Q4

REPORT INFORMATION
  Report Type: Spontaneous
  Country: US (occurrence: US)
  Receive Date: 20141112
  Receipt Date: 20141112
  Transmission Date: 20150529
  Serious: Yes (Hospitalization, Other)
  Sender: FDA-Public Use
  Company Number: US-GLAXOSMITHKLINE-US2014GSK020136

PATIENT
  Sex: Male

DRUGS (2)
  1. ROSIGLITAZONE MALEATE TABLET [Suspect]
     Active Substance: ROSIGLITAZONE
     Indication: DIABETES MELLITUS
     Dosage: 8 MG, QD
     Route: 048
     Dates: start: 20020409, end: 20080712
  2. AVANDIA [Suspect]
     Active Substance: ROSIGLITAZONE MALEATE
     Indication: DIABETES MELLITUS
     Dosage: 8 MG, QD
     Route: 048
     Dates: start: 20070305, end: 20070621

REACTIONS (1)
  - Cardiac failure congestive [Unknown]
